FAERS Safety Report 7399789-1 (Version None)
Quarter: 2011Q2

REPORT INFORMATION
  Report Type: 
  Country: None (occurrence: None)
  Receive Date: 20110407
  Receipt Date: 20110331
  Transmission Date: 20111010
  Serious: Yes (Other)
  Sender: FDA-Public Use
  Company Number: GB-BAXTER-2011BH008640

PATIENT
  Age: 29 Year
  Sex: Female
  Weight: 60 kg

DRUGS (2)
  1. PREDNISOLONE [Concomitant]
  2. GAMMAGARD LIQUID [Suspect]
     Indication: AUTOIMMUNE THROMBOCYTOPENIA
     Route: 042
     Dates: start: 20110318, end: 20110318

REACTIONS (5)
  - OXYGEN SATURATION DECREASED [None]
  - CHEST DISCOMFORT [None]
  - FLUSHING [None]
  - PARAESTHESIA ORAL [None]
  - DYSPNOEA [None]
